FAERS Safety Report 10177614 (Version 1)
Quarter: 2014Q2

REPORT INFORMATION
  Report Type: Spontaneous
  Country: US (occurrence: US)
  Receive Date: 20140516
  Receipt Date: 20140516
  Transmission Date: 20141212
  Serious: Yes (Other)
  Sender: FDA-Public Use
  Company Number: US-ELI_LILLY_AND_COMPANY-US201405002182

PATIENT
  Age: 41 Year
  Sex: Male

DRUGS (2)
  1. AXIRON [Suspect]
     Indication: HYPOGONADISM
     Dosage: 90 MG, QD
     Route: 061
  2. AXIRON [Suspect]
     Dosage: 60 MG, QD
     Route: 061

REACTIONS (2)
  - Thrombosis [Unknown]
  - Blood testosterone increased [Unknown]
